FAERS Safety Report 9142947 (Version 2)
Quarter: 2013Q2

REPORT INFORMATION
  Report Type: Spontaneous
  Country: US (occurrence: US)
  Receive Date: 20130306
  Receipt Date: 20130409
  Transmission Date: 20140414
  Serious: Yes (Disabling, Other)
  Sender: FDA-Public Use
  Company Number: US-PFIZER INC-2013074211

PATIENT
  Age: 72 Year
  Sex: Female
  Weight: 72.6 kg

DRUGS (9)
  1. INLYTA [Suspect]
     Indication: RENAL CELL CARCINOMA
     Dosage: 5 MG, 2X/DAY
     Route: 048
     Dates: start: 201204
  2. INLYTA [Suspect]
     Dosage: 5 MG, 1X/DAY
     Route: 048
     Dates: start: 20130226, end: 201303
  3. MICARDIS HCT [Concomitant]
     Dosage: 80 MG, 1X/DAY
  4. NORVASC [Concomitant]
     Dosage: 5 MG, 2X/DAY
  5. CARVEDILOL [Concomitant]
     Dosage: 25 MG, 2X/DAY
  6. SYNTHROID [Concomitant]
     Indication: HYPOTHYROIDISM
     Dosage: 125 UG, 1X/DAY
  7. GLUCOTROL XL [Concomitant]
     Indication: DIABETES MELLITUS
     Dosage: 5 MG, 2X/DAY
  8. ZOFRAN [Concomitant]
     Indication: NAUSEA
     Dosage: 8 MG, AS NEEDED
  9. LOMOTIL [Concomitant]
     Indication: DIARRHOEA
     Dosage: UNK, AS NEEDED

REACTIONS (6)
  - Furuncle [Recovering/Resolving]
  - Diarrhoea [Unknown]
  - Nausea [Unknown]
  - Alopecia [Unknown]
  - Fatigue [Unknown]
  - Vomiting [Unknown]
